FAERS Safety Report 4312838-X (Version None)
Quarter: 2004Q1

REPORT INFORMATION
  Report Type: 
  Country: None (occurrence: None)
  Receive Date: 20040304
  Receipt Date: 20040224
  Transmission Date: 20041129
  Serious: Yes (Other)
  Sender: FDA-Public Use
  Company Number: 2004200321JP

PATIENT
  Age: 72 Year
  Sex: Male

DRUGS (4)
  1. PROSTIN VR PEDIATRIC [Suspect]
     Indication: BLOOD PRESSURE INCREASED
  2. PROPOFOL [Concomitant]
  3. FENTANYL [Concomitant]
  4. SEVOFLURANE (SEVOLFURANE) [Concomitant]

REACTIONS (8)
  - ATHEROSCLEROSIS [None]
  - CAROTID ARTERY STENOSIS [None]
  - CYANOSIS [None]
  - HYPERTENSION [None]
  - ISCHAEMIA [None]
  - MEDICAL DEVICE COMPLICATION [None]
  - POST PROCEDURAL COMPLICATION [None]
  - TONGUE DISORDER [None]
